FAERS Safety Report 8540040-4 (Version None)
Quarter: 2012Q3

REPORT INFORMATION
  Report Type: 
  Country: None (occurrence: None)
  Receive Date: 20120726
  Receipt Date: 20120717
  Transmission Date: 20120928
  Serious: Yes (Hospitalization)
  Sender: FDA-Public Use
  Company Number: JP-ASTRAZENECA-2012SE32785

PATIENT
  Age: 83 Year
  Sex: Male
  Weight: 52 kg

DRUGS (6)
  1. BASEN [Concomitant]
     Indication: DIABETES MELLITUS
     Route: 048
     Dates: start: 20100410
  2. OLMESARTAN MEDOXOMIL [Concomitant]
     Indication: HYPERTENSION
     Route: 048
     Dates: start: 20100410
  3. THEOPHYLLINE [Concomitant]
     Indication: BRONCHITIS
     Route: 048
     Dates: start: 20100410, end: 20120413
  4. MUCODYNE [Concomitant]
     Indication: BRONCHITIS
     Route: 048
     Dates: start: 20100410, end: 20120413
  5. CRESTOR [Suspect]
     Indication: HYPERLIPIDAEMIA
     Route: 048
     Dates: start: 20120410, end: 20120413
  6. FLOMAX [Concomitant]
     Indication: BRONCHITIS
     Route: 048
     Dates: start: 20100410, end: 20120413

REACTIONS (2)
  - HEPATIC FUNCTION ABNORMAL [None]
  - RHABDOMYOLYSIS [None]
